FAERS Safety Report 25075361 (Version 2)
Quarter: 2025Q2

REPORT INFORMATION
  Report Type: Spontaneous
  Country: US (occurrence: US)
  Receive Date: 20250313
  Receipt Date: 20250407
  Transmission Date: 20250717
  Serious: Yes (Other)
  Sender: ALEXION PHARMACEUTICALS
  Company Number: US-AstraZeneca-CH-00821824A

PATIENT
  Age: 74 Year
  Weight: 60 kg

DRUGS (1)
  1. STRENSIQ [Suspect]
     Active Substance: ASFOTASE ALFA
     Indication: Hypophosphatasia
     Dosage: 120 MILLIGRAM, TIW
     Route: 065

REACTIONS (5)
  - Duodenal ulcer haemorrhage [Recovering/Resolving]
  - Dermatomyositis [Unknown]
  - Weight decreased [Recovering/Resolving]
  - Illness [Unknown]
  - Wheelchair user [Recovered/Resolved]
